FAERS Safety Report 8234152-2 (Version None)
Quarter: 2012Q1

REPORT INFORMATION
  Report Type: 
  Country: None (occurrence: None)
  Receive Date: 20120326
  Receipt Date: 20120320
  Transmission Date: 20120608
  Serious: Yes (Death, Hospitalization)
  Sender: FDA-Public Use
  Company Number: GB-CELGENEUS-167-CCAZA-11110897

PATIENT
  Sex: Male
  Weight: 90.4 kg

DRUGS (2)
  1. AZACITIDINE [Suspect]
     Route: 058
     Dates: end: 20111116
  2. AZACITIDINE [Suspect]
     Dosage: 75 MILLIGRAM/SQ. METER
     Route: 058
     Dates: start: 20111024, end: 20111030

REACTIONS (2)
  - NEUTROPENIC SEPSIS [None]
  - FEBRILE NEUTROPENIA [None]
